FAERS Safety Report 7604274-5 (Version None)
Quarter: 2011Q3

REPORT INFORMATION
  Report Type: 
  Country: None (occurrence: None)
  Receive Date: 20110712
  Receipt Date: 20110627
  Transmission Date: 20111222
  Serious: Yes (Hospitalization, Other)
  Sender: FDA-Public Use
  Company Number: US-ARROW GEN-2011-10181

PATIENT
  Age: 34 Year
  Sex: Female

DRUGS (1)
  1. FENTANYL [Suspect]
     Indication: PAIN
     Route: 065

REACTIONS (3)
  - OVERDOSE [None]
  - DRUG INEFFECTIVE [None]
  - HYPERAESTHESIA [None]
